FAERS Safety Report 4598546-9 (Version None)
Quarter: 2005Q1

REPORT INFORMATION
  Report Type: 
  Country: None (occurrence: None)
  Receive Date: 20050304
  Receipt Date: 20041202
  Transmission Date: 20050727
  Serious: Yes (Hospitalization)
  Sender: FDA-Public Use
  Company Number: JP-ROCHE-388307

PATIENT
  Age: 62 Year
  Sex: Female

DRUGS (4)
  1. PEGASYS [Suspect]
     Indication: HEPATITIS C
     Route: 058
     Dates: start: 20040419, end: 20041130
  2. METHIMAZOLE [Suspect]
     Indication: DRUG USE FOR UNKNOWN INDICATION
     Route: 048
     Dates: start: 20010615, end: 20041206
  3. URSO 250 [Concomitant]
     Route: 065
  4. PROMAC [Concomitant]
     Route: 048

REACTIONS (6)
  - ABDOMINAL NEOPLASM [None]
  - CARDIAC FAILURE [None]
  - CARDIOMEGALY [None]
  - CHEST X-RAY ABNORMAL [None]
  - HEPATIC NEOPLASM MALIGNANT [None]
  - OVARIAN NEOPLASM [None]
